FAERS Safety Report 16724554 (Version 3)
Quarter: 2019Q4

REPORT INFORMATION
  Report Type: Spontaneous
  Country: US (occurrence: US)
  Receive Date: 20190821
  Receipt Date: 20191026
  Transmission Date: 20200122
  Serious: Yes (Other)
  Sender: FDA-Public Use
  Company Number: US-009507513-1908USA007248

PATIENT
  Age: 24 Year
  Sex: Female
  Weight: 139 kg

DRUGS (1)
  1. NEXPLANON [Suspect]
     Active Substance: ETONOGESTREL
     Indication: CONTRACEPTION
     Dosage: 1 IMPLANT, UNK
     Route: 058
     Dates: start: 20190808, end: 20190815

REACTIONS (6)
  - Implant site pain [Recovered/Resolved]
  - Implant site induration [Recovered/Resolved]
  - Staphylococcal infection [Recovered/Resolved]
  - Implant site erythema [Recovered/Resolved]
  - Implant site infection [Recovered/Resolved]
  - Cellulitis [Unknown]

NARRATIVE: CASE EVENT DATE: 201908
